FAERS Safety Report 9903020 (Version 1)
Quarter: 2014Q1

REPORT INFORMATION
  Report Type: Report from Study
  Country: IT (occurrence: IT)
  Receive Date: 20140217
  Receipt Date: 20140217
  Transmission Date: 20141002
  Serious: Yes (Other)
  Sender: FDA-Public Use
  Company Number: PHHY2014IT016249

PATIENT
  Age: 77 Year
  Sex: Male
  Weight: 66 kg

DRUGS (3)
  1. AMN107 [Suspect]
     Indication: CHRONIC MYELOID LEUKAEMIA
     Dosage: 600 MG, DAY
     Route: 048
     Dates: start: 20110204, end: 20140129
  2. CARDIO ASPIRIN [Concomitant]
     Indication: CAROTID ARTERY STENOSIS
     Dosage: 100 MG, QD
  3. XATRAL [Concomitant]
     Dosage: UNK

REACTIONS (5)
  - Congestive cardiomyopathy [Unknown]
  - Syncope [Recovered/Resolved]
  - Left ventricular dysfunction [Unknown]
  - Fall [Unknown]
  - Amnesia [Unknown]
